FAERS Safety Report 24670497 (Version 1)
Quarter: 2024Q4

REPORT INFORMATION
  Report Type: Spontaneous
  Country: IR (occurrence: IR)
  Receive Date: 20241127
  Receipt Date: 20241127
  Transmission Date: 20250115
  Serious: Yes (Death, Life-Threatening, Hospitalization, Other)
  Sender: PFIZER
  Company Number: IR-PFIZER INC-PV202400152318

PATIENT
  Age: 73 Year
  Sex: Female

DRUGS (4)
  1. MEROPENEM [Suspect]
     Active Substance: MEROPENEM
     Indication: Purple urine bag syndrome
     Dosage: UNK ADJUSTED DOSES
  2. VANCOMYCIN [Suspect]
     Active Substance: VANCOMYCIN
     Indication: Purple urine bag syndrome
     Dosage: UNK ADJUSTED DOSES
  3. APIXABAN [Concomitant]
     Active Substance: APIXABAN
     Indication: Deep vein thrombosis
     Dosage: UNK
  4. TOLTERODINE [Concomitant]
     Active Substance: TOLTERODINE
     Indication: Urge incontinence
     Dosage: UNK

REACTIONS (1)
  - Drug ineffective [Fatal]
